FAERS Safety Report 21090926 (Version 1)
Quarter: 2022Q3

REPORT INFORMATION
  Report Type: Spontaneous
  Country: DK (occurrence: DK)
  Receive Date: 20220716
  Receipt Date: 20220716
  Transmission Date: 20221027
  Serious: Yes (Other)
  Sender: FDA-Public Use
  Company Number: None

PATIENT
  Age: 54 Year
  Sex: Male

DRUGS (2)
  1. PREDNISOLONE [Suspect]
     Active Substance: PREDNISOLONE
     Indication: Brain neoplasm
     Dosage: STRENGTH: UNKNOWN,UNIT DOSE 75 MG, FREQUENCY TIME 1 DAYS
     Route: 065
     Dates: start: 20191001, end: 201910
  2. PREDNISOLONE [Suspect]
     Active Substance: PREDNISOLONE
     Dosage: DOSAGE: CONTINUALLY TREATED WITH UNKNOWN DOSE AND INTERVAL?STRENGTH: UNKNOWN
     Route: 065
     Dates: start: 2020

REACTIONS (6)
  - Hallucination, visual [Recovered/Resolved]
  - Cognitive disorder [Unknown]
  - Type 2 diabetes mellitus [Not Recovered/Not Resolved]
  - Depressed mood [Unknown]
  - Anxiety [Unknown]
  - Psychomotor hyperactivity [Recovered/Resolved]

NARRATIVE: CASE EVENT DATE: 20190101
